FAERS Safety Report 9550700 (Version 1)
Quarter: 2013Q3

REPORT INFORMATION
  Report Type: Spontaneous
  Country: US (occurrence: US)
  Receive Date: 20130924
  Receipt Date: 20130924
  Transmission Date: 20140515
  Serious: No
  Sender: FDA-Public Use
  Company Number: US-SANOFI-AVENTIS-2013SA046154

PATIENT
  Age: 45 Year
  Sex: Female
  Weight: 61 kg

DRUGS (5)
  1. AUBAGIO [Suspect]
     Indication: MULTIPLE SCLEROSIS
     Route: 048
     Dates: start: 20130412
  2. NEURONTIN [Concomitant]
     Indication: MULTIPLE SCLEROSIS
     Dates: start: 200005
  3. AMITRIPTYLINE [Concomitant]
     Indication: MULTIPLE SCLEROSIS
     Dates: start: 200005
  4. BACLOFEN [Concomitant]
     Indication: MULTIPLE SCLEROSIS
     Dates: start: 201005
  5. VITAMIN D [Concomitant]
     Indication: VITAMIN D DEFICIENCY
     Dates: start: 200804

REACTIONS (7)
  - Hair growth abnormal [Recovered/Resolved]
  - Nail growth abnormal [Recovered/Resolved]
  - Influenza like illness [Recovered/Resolved]
  - Pain [Recovered/Resolved]
  - Diarrhoea [Recovered/Resolved]
  - Back pain [Recovered/Resolved]
  - Weight decreased [Recovered/Resolved]
